FAERS Safety Report 12286211 (Version 3)
Quarter: 2016Q2

REPORT INFORMATION
  Report Type: Spontaneous
  Country: US (occurrence: US)
  Receive Date: 20160420
  Receipt Date: 20160502
  Transmission Date: 20160815
  Serious: Yes (Other)
  Sender: FDA-Public Use
  Company Number: US-MDT-ADR-2016-00714

PATIENT
  Age: 38 Year
  Sex: Male

DRUGS (2)
  1. BACLOFEN. [Suspect]
     Active Substance: BACLOFEN
     Dosage: 20MG QID
     Route: 048
  2. BACLOFEN. [Suspect]
     Active Substance: BACLOFEN
     Dosage: 60 MCG/DAY
     Route: 037
     Dates: start: 20160328

REACTIONS (4)
  - Diplopia [Unknown]
  - Dizziness [Recovered/Resolved]
  - Vision blurred [Unknown]
  - Blindness [Unknown]

NARRATIVE: CASE EVENT DATE: 20160328
